FAERS Safety Report 10202364 (Version 1)
Quarter: 2014Q2

REPORT INFORMATION
  Report Type: Spontaneous
  Country: US (occurrence: US)
  Receive Date: 20140528
  Receipt Date: 20140528
  Transmission Date: 20141212
  Serious: No
  Sender: FDA-Public Use
  Company Number: US-BRISTOL-MYERS SQUIBB COMPANY-20562682

PATIENT
  Age: 43 Year
  Sex: Male
  Weight: 164.17 kg

DRUGS (6)
  1. BYDUREON 2MG VIAL [Suspect]
  2. METFORMIN HCL [Suspect]
  3. GLIPIZIDE [Suspect]
  4. LISINOPRIL + HCTZ [Concomitant]
     Dosage: 1DF:HCTZ/LISINOPRIL 20/25
  5. PERCOCET [Concomitant]
  6. PREDNISONE [Concomitant]

REACTIONS (3)
  - Injection site nodule [Unknown]
  - Drug dose omission [Unknown]
  - Blood glucose increased [Unknown]
